FAERS Safety Report 11277195 (Version 2)
Quarter: 2015Q3

REPORT INFORMATION
  Report Type: Report from Study
  Country: US (occurrence: US)
  Receive Date: 20150716
  Receipt Date: 20150717
  Transmission Date: 20151125
  Serious: Yes (Hospitalization, Other)
  Sender: FDA-Public Use
  Company Number: US-ASTRAZENECA-2015SE67242

PATIENT
  Age: 22560 Day
  Sex: Male
  Weight: 102.1 kg

DRUGS (9)
  1. HYDROCHOLOTHIAZIDE [Concomitant]
     Indication: FLUID RETENTION
  2. LISINOPRIL. [Suspect]
     Active Substance: LISINOPRIL
     Indication: HYPERTENSION
     Route: 048
     Dates: start: 201505
  3. CARVEDILOL. [Concomitant]
     Active Substance: CARVEDILOL
  4. POTASSIUM CHLORIDE. [Concomitant]
     Active Substance: POTASSIUM CHLORIDE
     Indication: MINERAL SUPPLEMENTATION
  5. LISINOPRIL. [Suspect]
     Active Substance: LISINOPRIL
     Indication: HYPERTENSION
     Route: 048
     Dates: start: 201408, end: 201505
  6. BRILINTA [Suspect]
     Active Substance: TICAGRELOR
     Indication: STENT PLACEMENT
     Route: 048
     Dates: start: 20150529
  7. ASPIRIN. [Concomitant]
     Active Substance: ASPIRIN
  8. BRILINTA [Suspect]
     Active Substance: TICAGRELOR
     Indication: ACUTE CORONARY SYNDROME
     Route: 048
     Dates: start: 20150529
  9. ATORVASTATIN [Concomitant]
     Active Substance: ATORVASTATIN
     Indication: BLOOD CHOLESTEROL INCREASED

REACTIONS (10)
  - Dry skin [Unknown]
  - Wound [Unknown]
  - Conjunctival haemorrhage [Unknown]
  - Contusion [Unknown]
  - Blood pressure increased [Unknown]
  - Impaired healing [Unknown]
  - Haemorrhage [Unknown]
  - Skin wrinkling [Unknown]
  - Laceration [Unknown]
  - Drug ineffective [Unknown]

NARRATIVE: CASE EVENT DATE: 20150531
